FAERS Safety Report 8128168-4 (Version None)
Quarter: 2011Q4

REPORT INFORMATION
  Report Type: 
  Country: None (occurrence: None)
  Receive Date: 20111228
  Receipt Date: 20110527
  Transmission Date: 20120403
  Serious: Yes (Other)
  Sender: FDA-Public Use
  Company Number: WAES 1105USA04063

PATIENT
  Age: 43 Year
  Sex: Male

DRUGS (3)
  1. NIACIN [Concomitant]
  2. ZETIA [Suspect]
     Indication: CARDIAC DISORDER
     Dosage: 10 MG/DAILY/PO
     Route: 048
  3. CRESTOR [Concomitant]

REACTIONS (2)
  - ASPARTATE AMINOTRANSFERASE INCREASED [None]
  - ALANINE AMINOTRANSFERASE INCREASED [None]
